FAERS Safety Report 5892263-0 (Version None)
Quarter: 2008Q3

REPORT INFORMATION
  Report Type: 
  Country: None (occurrence: None)
  Receive Date: 20080919
  Receipt Date: 20080911
  Transmission Date: 20090109
  Serious: Yes (Death)
  Sender: FDA-Public Use
  Company Number: APP200800791

PATIENT
  Age: 12 Year
  Sex: Male

DRUGS (1)
  1. SODIUM PHOSPHATES [Suspect]
     Indication: BLOOD PHOSPHORUS DECREASED
     Dosage: , ONCE, INTRAVENOUS BOLUS
     Route: 040

REACTIONS (4)
  - ACCIDENTAL OVERDOSE [None]
  - DRUG DISPENSING ERROR [None]
  - ELECTROLYTE IMBALANCE [None]
  - MEDICATION ERROR [None]
